FAERS Safety Report 15867376 (Version 1)
Quarter: 2019Q1

REPORT INFORMATION
  Report Type: Report from Study
  Country: NL (occurrence: NL)
  Receive Date: 20190125
  Receipt Date: 20190125
  Transmission Date: 20190417
  Serious: Yes (Other)
  Sender: FDA-Public Use
  Company Number: NL-ASTRAZENECA-2019SE12707

PATIENT
  Age: 72 Year
  Sex: Female

DRUGS (3)
  1. OSIMERTINIB. [Suspect]
     Active Substance: OSIMERTINIB
     Indication: NON-SMALL CELL LUNG CANCER STAGE IV
     Route: 048
  2. ERLOTINIB [Suspect]
     Active Substance: ERLOTINIB
     Indication: NON-SMALL CELL LUNG CANCER STAGE IV
     Route: 065
  3. CRIZOTINIB [Suspect]
     Active Substance: CRIZOTINIB
     Indication: DRUG RESISTANCE
     Route: 065

REACTIONS (4)
  - Drug resistance [Unknown]
  - Acquired gene mutation [Unknown]
  - Nausea [Unknown]
  - Fatigue [Unknown]
